FAERS Safety Report 23096533 (Version 3)
Quarter: 2024Q1

REPORT INFORMATION
  Report Type: Spontaneous
  Country: US (occurrence: US)
  Receive Date: 20231023
  Receipt Date: 20240319
  Transmission Date: 20240409
  Serious: No
  Sender: FDA-Public Use
  Company Number: US-KYOWAKIRIN-2023KK016616

PATIENT

DRUGS (16)
  1. CRYSVITA [Suspect]
     Active Substance: BUROSUMAB-TWZA
     Indication: Hereditary hypophosphataemic rickets
     Dosage: 90 MG, 1X/4 WEEKS
     Route: 058
  2. CRYSVITA [Suspect]
     Active Substance: BUROSUMAB-TWZA
     Dosage: 90 MG, 1X/4 WEEKS (3 ML)
     Route: 058
  3. CRYSVITA [Suspect]
     Active Substance: BUROSUMAB-TWZA
     Dosage: 90 MG, 1X/4 WEEKS 3 ML (90 MG) UNDER THE SKIN
     Route: 058
  4. CRYSVITA [Concomitant]
     Active Substance: BUROSUMAB-TWZA
     Indication: Product used for unknown indication
     Dosage: UNK
     Route: 065
  5. NEXPLANON [Concomitant]
     Active Substance: ETONOGESTREL
     Indication: Product used for unknown indication
     Dosage: 68 MG IMPLANT
     Route: 065
  6. FERROUS SULFATE [Concomitant]
     Active Substance: FERROUS SULFATE
     Indication: Product used for unknown indication
     Dosage: 220 (44)/5 SOLUTION
     Route: 065
  7. GABAPENTIN [Concomitant]
     Active Substance: GABAPENTIN
     Indication: Product used for unknown indication
     Dosage: 100 MG
     Route: 065
  8. PRILOSEC [Concomitant]
     Active Substance: OMEPRAZOLE MAGNESIUM
     Indication: Product used for unknown indication
     Dosage: 20 MG (OTC TABLET DR)
     Route: 065
  9. IBUPROFEN [Concomitant]
     Active Substance: IBUPROFEN
     Indication: Product used for unknown indication
     Dosage: 800 MG
     Route: 065
  10. ONDANSETRON HYDROCHLORIDE [Concomitant]
     Active Substance: ONDANSETRON HYDROCHLORIDE
     Indication: Product used for unknown indication
     Dosage: 4MG/2ML AMPUL
     Route: 065
  11. NARCAN [Concomitant]
     Active Substance: NALOXONE HYDROCHLORIDE
     Indication: Product used for unknown indication
     Dosage: 4 MG (SPRAY)
     Route: 065
  12. OXYCODONE HYDROCHLORIDE [Concomitant]
     Active Substance: OXYCODONE HYDROCHLORIDE
     Indication: Product used for unknown indication
     Dosage: 5 MG
     Route: 065
  13. OXYCONTIN [Concomitant]
     Active Substance: OXYCODONE HYDROCHLORIDE
     Indication: Product used for unknown indication
     Dosage: 10 MG, Q12H ER
     Route: 065
  14. LESSINA [Concomitant]
     Active Substance: ETHINYL ESTRADIOL\LEVONORGESTREL
     Indication: Product used for unknown indication
     Dosage: UNK 0.1-0.02 MG
     Route: 065
  15. VITAMIN D3 [Concomitant]
     Active Substance: CHOLECALCIFEROL
     Indication: Product used for unknown indication
     Dosage: 100000 G (POWDER)
     Route: 065
  16. PRILOSEC [Concomitant]
     Active Substance: OMEPRAZOLE MAGNESIUM
     Indication: Product used for unknown indication
     Dosage: 20 MG
     Route: 065

REACTIONS (21)
  - Decreased appetite [Unknown]
  - Urinary tract infection [Not Recovered/Not Resolved]
  - Fungal infection [Not Recovered/Not Resolved]
  - Mobility decreased [Unknown]
  - Gait disturbance [Unknown]
  - Cough [Unknown]
  - Chronic sinusitis [Unknown]
  - Abdominal discomfort [Unknown]
  - Eye infection [Unknown]
  - Ear, nose and throat infection [Unknown]
  - Arthralgia [Unknown]
  - Diarrhoea [Unknown]
  - Pain [Unknown]
  - Rash pruritic [Unknown]
  - Headache [Not Recovered/Not Resolved]
  - Urticaria [Not Recovered/Not Resolved]
  - Constipation [Unknown]
  - Bone pain [Not Recovered/Not Resolved]
  - Walking aid user [Unknown]
  - Walking aid user [Unknown]
  - Nausea [Unknown]

NARRATIVE: CASE EVENT DATE: 20230923
